FAERS Safety Report 23734998 (Version 1)
Quarter: 2024Q2

REPORT INFORMATION
  Report Type: Spontaneous
  Country: US (occurrence: US)
  Receive Date: 20240412
  Receipt Date: 20240412
  Transmission Date: 20240716
  Serious: No
  Sender: FDA-Public Use
  Company Number: US-LUPIN PHARMACEUTICALS INC.-2024-03062

PATIENT

DRUGS (1)
  1. MOXIFLOXACIN HYDROCHLORIDE [Suspect]
     Active Substance: MOXIFLOXACIN HYDROCHLORIDE\MOXIFLOXACIN HYDROCHLORIDE MONOHYDRATE
     Indication: Cataract operation
     Dosage: 1 DROP, TID (IN RIGHT EYE FOR 3 DAYS)
     Route: 065
     Dates: start: 20240331

REACTIONS (2)
  - Incorrect product administration duration [Unknown]
  - Off label use [Unknown]
